FAERS Safety Report 15680146 (Version 1)
Quarter: 2018Q4

REPORT INFORMATION
  Report Type: Report from Study
  Country: None (occurrence: DE)
  Receive Date: 20181203
  Receipt Date: 20181203
  Transmission Date: 20190205
  Serious: Yes (Hospitalization)
  Sender: FDA-Public Use
  Company Number: DE-ABBVIE-18K-062-2575262-00

PATIENT
  Age: 34 Year
  Sex: Female

DRUGS (2)
  1. HUMIRA [Suspect]
     Active Substance: ADALIMUMAB
     Route: 058
     Dates: start: 2016
  2. HUMIRA [Suspect]
     Active Substance: ADALIMUMAB
     Indication: JUVENILE IDIOPATHIC ARTHRITIS
     Route: 058
     Dates: start: 200510, end: 2016

REACTIONS (1)
  - Ureterolithiasis [Recovered/Resolved]

NARRATIVE: CASE EVENT DATE: 20180504
